FAERS Safety Report 21074714 (Version 4)
Quarter: 2022Q4

REPORT INFORMATION
  Report Type: Spontaneous
  Country: US (occurrence: US)
  Receive Date: 20220713
  Receipt Date: 20221213
  Transmission Date: 20230113
  Serious: Yes (Death)
  Sender: FDA-Public Use
  Company Number: US-NOVARTISPH-NVSC2022US158440

PATIENT
  Age: 51 Year
  Sex: Female

DRUGS (1)
  1. LUTATHERA [Suspect]
     Active Substance: LUTETIUM OXODOTREOTIDE LU-177
     Indication: Product used for unknown indication
     Dosage: (RECIEVED 1ST DOSE)
     Route: 065

REACTIONS (1)
  - Neuroendocrine tumour [Fatal]

NARRATIVE: CASE EVENT DATE: 20210716
